FAERS Safety Report 14036075 (Version 1)
Quarter: 2017Q4

REPORT INFORMATION
  Report Type: Spontaneous
  Country: US (occurrence: US)
  Receive Date: 20171003
  Receipt Date: 20171003
  Transmission Date: 20180321
  Serious: No
  Sender: FDA-Public Use
  Company Number: US-ROCHE-1918324

PATIENT
  Age: 55 Year
  Sex: Male

DRUGS (1)
  1. ZELBORAF [Suspect]
     Active Substance: VEMURAFENIB
     Indication: COLON CANCER
     Dosage: ONGOING: YES
     Route: 048
     Dates: start: 20140716

REACTIONS (3)
  - Off label use [Unknown]
  - Arthralgia [Unknown]
  - Uveitis [Unknown]

NARRATIVE: CASE EVENT DATE: 20170405
